FAERS Safety Report 11081823 (Version 1)
Quarter: 2015Q2

REPORT INFORMATION
  Report Type: Spontaneous
  Country: US (occurrence: None)
  Receive Date: 20150430
  Receipt Date: 20150430
  Transmission Date: 20150821
  Serious: No
  Sender: FDA-Public Use
  Company Number: None

PATIENT
  Age: 25 Year
  Sex: Female

DRUGS (2)
  1. MAKENA [Suspect]
     Active Substance: HYDROXYPROGESTERONE CAPROATE
     Indication: PREMATURE LABOUR
     Dosage: 250MG, Q WEEK, IM
     Route: 030
     Dates: start: 20141114, end: 20150429
  2. MAKENA [Suspect]
     Active Substance: HYDROXYPROGESTERONE CAPROATE
     Dosage: 250MG, Q WEEK, IM
     Route: 030
     Dates: start: 20141114, end: 20150429

REACTIONS (2)
  - Premature delivery [None]
  - Exposure during pregnancy [None]

NARRATIVE: CASE EVENT DATE: 20150429
